FAERS Safety Report 10904397 (Version 2)
Quarter: 2015Q1

REPORT INFORMATION
  Report Type: Report from Study
  Country: TW (occurrence: TW)
  Receive Date: 20150311
  Receipt Date: 20150319
  Transmission Date: 20150721
  Serious: Yes (Hospitalization)
  Sender: FDA-Public Use
  Company Number: TW-SA-2014SA062978

PATIENT
  Age: 49 Year
  Sex: Male
  Weight: 58 kg

DRUGS (4)
  1. THYMOGLOBULIN [Suspect]
     Active Substance: LAPINE T-LYMPHOCYTE IMMUNE GLOBULIN
     Indication: APLASTIC ANAEMIA
     Route: 042
     Dates: start: 20120210, end: 20120214
  2. CYCLOSPORIN [Concomitant]
     Active Substance: CYCLOSPORINE
     Route: 048
     Dates: start: 20140210
  3. PREDNISOLONE. [Concomitant]
     Active Substance: PREDNISOLONE
  4. CEPHALEXIN. [Concomitant]
     Active Substance: CEPHALEXIN

REACTIONS (3)
  - Staphylococcal bacteraemia [Recovered/Resolved]
  - Febrile neutropenia [Recovered/Resolved]
  - Pneumonia [Recovered/Resolved]

NARRATIVE: CASE EVENT DATE: 20120214
